FAERS Safety Report 5941570-1 (Version None)
Quarter: 2008Q4

REPORT INFORMATION
  Report Type: 
  Country: None (occurrence: None)
  Receive Date: 20081104
  Receipt Date: 20081104
  Transmission Date: 20090506
  Serious: Yes (Life-Threatening)
  Sender: FDA-Public Use
  Company Number: None

PATIENT
  Age: 62 Year
  Sex: Male
  Weight: 100.6985 kg

DRUGS (1)
  1. ERBITUX [Suspect]
     Indication: METASTATIC SQUAMOUS CELL CARCINOMA
     Dosage: 800MG X 1 IV DRIP, 1 DOSE
     Route: 041
     Dates: start: 20081030, end: 20081030

REACTIONS (3)
  - CARDIAC ARREST [None]
  - GRAND MAL CONVULSION [None]
  - RESPIRATORY ARREST [None]
